FAERS Safety Report 7682297-8 (Version None)
Quarter: 2011Q3

REPORT INFORMATION
  Report Type: 
  Country: None (occurrence: None)
  Receive Date: 20110815
  Receipt Date: 20110719
  Transmission Date: 20111222
  Serious: No
  Sender: FDA-Public Use
  Company Number: US-BAYER-2011-058687

PATIENT
  Age: 49 Year
  Sex: Female

DRUGS (3)
  1. ALEVE (CAPLET) [Concomitant]
  2. CLARITIN [Concomitant]
  3. INTERFERON BETA-1B [Suspect]
     Indication: MULTIPLE SCLEROSIS
     Dosage: 4 MIU, QOD
     Route: 058
     Dates: start: 20110617

REACTIONS (4)
  - ARTHRALGIA [None]
  - INJECTION SITE REACTION [None]
  - HEADACHE [None]
  - PAIN [None]
